FAERS Safety Report 7361055-8 (Version None)
Quarter: 2011Q1

REPORT INFORMATION
  Report Type: 
  Country: None (occurrence: None)
  Receive Date: 20110318
  Receipt Date: 20101227
  Transmission Date: 20110831
  Serious: No
  Sender: FDA-Public Use
  Company Number: US-BAYER-2011-019341

PATIENT
  Sex: Female
  Weight: 83 kg

DRUGS (3)
  1. LEVOTHYROXINE SODIUM [Concomitant]
  2. ASPIRIN [Suspect]
     Indication: ISCHAEMIC HEART DISEASE PROPHYLAXIS
     Dosage: UNK
     Route: 048
     Dates: start: 20100101
  3. TRIAM-CO [Concomitant]

REACTIONS (1)
  - HEADACHE [None]
